FAERS Safety Report 17817042 (Version 1)
Quarter: 2020Q2

REPORT INFORMATION
  Report Type: Spontaneous
  Country: JP (occurrence: JP)
  Receive Date: 20200522
  Receipt Date: 20200522
  Transmission Date: 20200714
  Serious: Yes (Other)
  Sender: FDA-Public Use
  Company Number: JP-PBT-000310

PATIENT

DRUGS (5)
  1. PACLITAXEL. [Interacting]
     Active Substance: PACLITAXEL
     Indication: BREAST CANCER
     Dosage: WEEKLY
     Route: 065
  2. TACROLIMUS. [Suspect]
     Active Substance: TACROLIMUS
     Indication: PROPHYLAXIS AGAINST TRANSPLANT REJECTION
     Route: 065
  3. TRASTUZUMAB. [Interacting]
     Active Substance: TRASTUZUMAB
     Indication: BREAST CANCER
     Dosage: WEEKLY
     Route: 065
  4. EPIRUBICIN [Interacting]
     Active Substance: EPIRUBICIN
     Indication: BREAST CANCER
     Dosage: 4 COURSES
     Route: 065
  5. CYCLOPHOSPHAMIDE. [Interacting]
     Active Substance: CYCLOPHOSPHAMIDE
     Indication: BREAST CANCER
     Dosage: 4 COURSES
     Route: 065

REACTIONS (3)
  - Breast cancer [Unknown]
  - Drug interaction [Unknown]
  - Immunosuppressant drug level decreased [Unknown]
